FAERS Safety Report 20590309 (Version 1)
Quarter: 2022Q1

REPORT INFORMATION
  Report Type: Spontaneous
  Country: US (occurrence: US)
  Receive Date: 20220314
  Receipt Date: 20220314
  Transmission Date: 20220424
  Serious: Yes (Other)
  Sender: FDA-Public Use
  Company Number: US-GLAXOSMITHKLINE-US2022GSK045791

PATIENT
  Age: 6 Year
  Sex: Male

DRUGS (2)
  1. FLUTICASONE PROPIONATE [Suspect]
     Active Substance: FLUTICASONE PROPIONATE
     Indication: Rhinitis perennial
     Dosage: TWO SPRAYS IN EACH NOSTRIL TWICE DAILY
     Route: 045
  2. LORATADINE [Concomitant]
     Active Substance: LORATADINE
     Indication: Product used for unknown indication
     Dosage: UNK

REACTIONS (7)
  - Tic [Recovered/Resolved]
  - Exophthalmos [Recovered/Resolved]
  - Musculoskeletal stiffness [Recovered/Resolved]
  - Condition aggravated [Recovered/Resolved]
  - Affective disorder [Recovered/Resolved]
  - Flat affect [Recovered/Resolved]
  - Anger [Recovered/Resolved]
